FAERS Safety Report 25228791 (Version 2)
Quarter: 2025Q2

REPORT INFORMATION
  Report Type: Spontaneous
  Country: US (occurrence: US)
  Receive Date: 20250423
  Receipt Date: 20250426
  Transmission Date: 20250717
  Serious: Yes (Hospitalization, Other)
  Sender: UNICHEM
  Company Number: US-UNICHEM LABORATORIES LIMITED-UNI-2025-US-001950

PATIENT

DRUGS (1)
  1. ALLOPURINOL [Suspect]
     Active Substance: ALLOPURINOL
     Indication: Product used for unknown indication
     Route: 065

REACTIONS (9)
  - Pancreatitis necrotising [Recovering/Resolving]
  - Pulmonary embolism [Recovering/Resolving]
  - Sepsis [Recovering/Resolving]
  - Gastric perforation [Recovering/Resolving]
  - Cytomegalovirus viraemia [Recovering/Resolving]
  - Epstein-Barr virus infection [Recovering/Resolving]
  - Human herpesvirus 6 infection [Recovering/Resolving]
  - Mycoplasma infection [Recovering/Resolving]
  - Drug reaction with eosinophilia and systemic symptoms [Recovering/Resolving]
